FAERS Safety Report 19673748 (Version 1)
Quarter: 2021Q3

REPORT INFORMATION
  Report Type: Spontaneous
  Country: US (occurrence: US)
  Receive Date: 20210809
  Receipt Date: 20210809
  Transmission Date: 20211014
  Serious: Yes (Other)
  Sender: FDA-Public Use
  Company Number: US-ACCORD-169869

PATIENT
  Age: 47 Year
  Sex: Female

DRUGS (12)
  1. SYNTHROID [Concomitant]
     Active Substance: LEVOTHYROXINE SODIUM
     Dosage: STRENGTH 50 MG
     Dates: start: 2010
  2. DOCETAXEL ACCORD [Suspect]
     Active Substance: DOCETAXEL
     Indication: BREAST CANCER
     Dates: start: 20120615, end: 20120927
  3. CLARITIN [Concomitant]
     Active Substance: LORATADINE
     Dates: start: 2010
  4. TAMOXIFEN [Concomitant]
     Active Substance: TAMOXIFEN
     Dates: start: 2010
  5. IBANDRONATE SODIUM. [Concomitant]
     Active Substance: IBANDRONATE SODIUM
     Dates: start: 2010
  6. CLONAZEPAM. [Concomitant]
     Active Substance: CLONAZEPAM
     Dates: start: 2010
  7. BISOPROLOL [Concomitant]
     Active Substance: BISOPROLOL
     Dates: start: 2010
  8. OMEPRAZOLE. [Concomitant]
     Active Substance: OMEPRAZOLE
     Dates: start: 2010
  9. BETAMETHASONE. [Concomitant]
     Active Substance: BETAMETHASONE
     Dates: start: 2010
  10. LETROZOLE. [Concomitant]
     Active Substance: LETROZOLE
     Dates: start: 2012
  11. SYNTHROID [Concomitant]
     Active Substance: LEVOTHYROXINE SODIUM
     Dosage: STRENGTH 50 MG
     Dates: start: 2008
  12. CYTOXAN [Suspect]
     Active Substance: CYCLOPHOSPHAMIDE
     Indication: BREAST CANCER
     Dates: start: 20120615, end: 20120927

REACTIONS (1)
  - Alopecia [Not Recovered/Not Resolved]

NARRATIVE: CASE EVENT DATE: 201211
